FAERS Safety Report 11364470 (Version 3)
Quarter: 2015Q3

REPORT INFORMATION
  Report Type: Spontaneous
  Country: US (occurrence: US)
  Receive Date: 20150811
  Receipt Date: 20150909
  Transmission Date: 20151125
  Serious: Yes (Death)
  Sender: FDA-Public Use
  Company Number: US-PFIZER INC-2015267081

PATIENT
  Age: 22 Year
  Sex: Female

DRUGS (1)
  1. THIOTHIXENE HCL [Suspect]
     Active Substance: THIOTHIXENE HYDROCHLORIDE
     Dosage: 12 MG, UNK (IN THREE DIVIDED DOSES WITHIN A 70 MIN PERIOD)
     Route: 030

REACTIONS (3)
  - Overdose [Fatal]
  - Drug level increased [Fatal]
  - Cardio-respiratory arrest [Fatal]
